FAERS Safety Report 5059858-8 (Version None)
Quarter: 2006Q3

REPORT INFORMATION
  Report Type: 
  Country: None (occurrence: None)
  Receive Date: 20060724
  Receipt Date: 20060614
  Transmission Date: 20061208
  Serious: Yes (Other)
  Sender: FDA-Public Use
  Company Number: 2006AC01119

PATIENT
  Sex: Female

DRUGS (5)
  1. CRESTOR [Suspect]
     Indication: HYPERCHOLESTEROLAEMIA
     Route: 048
     Dates: start: 20060316, end: 20060406
  2. METOPROLOL TARTRATE [Concomitant]
     Indication: HYPERTENSION
  3. THYROX [Concomitant]
     Indication: HYPOTHYROIDISM
  4. ENALAPRIL MALEATE [Concomitant]
     Indication: HYPERTENSION
  5. CLOPIDOGREL [Concomitant]
     Indication: ARTERIOSCLEROSIS

REACTIONS (1)
  - STOMATITIS [None]
